FAERS Safety Report 11141105 (Version 3)
Quarter: 2015Q4

REPORT INFORMATION
  Report Type: Spontaneous
  Country: US (occurrence: US)
  Receive Date: 20150525
  Receipt Date: 20151210
  Transmission Date: 20160304
  Serious: No
  Sender: FDA-Public Use
  Company Number: US-JNJFOC-20141114329

PATIENT
  Age: 17 Year
  Sex: Male

DRUGS (10)
  1. RISPERDAL [Suspect]
     Active Substance: RISPERIDONE
     Indication: ANXIETY
     Route: 048
     Dates: start: 20100123, end: 20130521
  2. RISPERDAL [Suspect]
     Active Substance: RISPERIDONE
     Indication: DEPRESSION
     Dosage: 1MG AND 2MG
     Route: 048
     Dates: start: 20130116
  3. RISPERIDONE. [Suspect]
     Active Substance: RISPERIDONE
     Indication: BIPOLAR DISORDER
     Route: 048
     Dates: start: 20100123, end: 20130521
  4. RISPERDAL [Suspect]
     Active Substance: RISPERIDONE
     Indication: BIPOLAR DISORDER
     Route: 048
     Dates: start: 20100123, end: 20130521
  5. RISPERIDONE. [Suspect]
     Active Substance: RISPERIDONE
     Indication: ANXIETY
     Route: 048
     Dates: start: 20100123, end: 20130521
  6. ABILIFY [Suspect]
     Active Substance: ARIPIPRAZOLE
     Indication: PSYCHOTIC DISORDER
     Route: 048
     Dates: start: 2010, end: 2012
  7. RISPERDAL [Suspect]
     Active Substance: RISPERIDONE
     Indication: DEPRESSION
     Route: 048
     Dates: start: 20100123, end: 20130521
  8. RISPERDAL [Suspect]
     Active Substance: RISPERIDONE
     Indication: ANXIETY
     Dosage: 1MG AND 2MG
     Route: 048
     Dates: start: 20130116
  9. RISPERDAL [Suspect]
     Active Substance: RISPERIDONE
     Indication: BIPOLAR DISORDER
     Dosage: 1MG AND 2MG
     Route: 048
     Dates: start: 20130116
  10. ABILIFY [Suspect]
     Active Substance: ARIPIPRAZOLE
     Indication: PSYCHOTIC DISORDER
     Route: 048
     Dates: start: 20100215

REACTIONS (5)
  - Weight increased [Unknown]
  - Gynaecomastia [Unknown]
  - Depression [Unknown]
  - Emotional disorder [Unknown]
  - Hallucination [Unknown]

NARRATIVE: CASE EVENT DATE: 20120522
